FAERS Safety Report 8276886-X (Version None)
Quarter: 2012Q2

REPORT INFORMATION
  Report Type: 
  Country: None (occurrence: None)
  Receive Date: 20120412
  Receipt Date: 20120402
  Transmission Date: 20120825
  Serious: Yes (Hospitalization)
  Sender: FDA-Public Use
  Company Number: US-ACTELION-A-NJ2010-40836

PATIENT

DRUGS (2)
  1. TRACLEER [Suspect]
     Indication: PULMONARY ARTERIAL HYPERTENSION
     Dosage: 125 MG, BID
     Route: 048
     Dates: start: 20100217
  2. PREDNISONE TAB [Concomitant]

REACTIONS (5)
  - CONDITION AGGRAVATED [None]
  - LUNG DISORDER [None]
  - BENIGN LUNG NEOPLASM [None]
  - FATIGUE [None]
  - DYSPNOEA [None]
